FAERS Safety Report 9103937 (Version 1)
Quarter: 2013Q1

REPORT INFORMATION
  Report Type: Spontaneous
  Country: US (occurrence: US)
  Receive Date: 20130219
  Receipt Date: 20130219
  Transmission Date: 20140127
  Serious: Yes (Death)
  Sender: FDA-Public Use
  Company Number: PHEH2013US004072

PATIENT
  Sex: Female

DRUGS (12)
  1. AFINITOR [Suspect]
     Dosage: 10 MG, DAILY
     Route: 048
  2. OXYCONTIN [Concomitant]
     Dosage: 20 MG, UNK
  3. OXYCODONE [Concomitant]
     Dosage: 10 MG, UNK
  4. LANTUS [Concomitant]
  5. HUMALOG [Concomitant]
  6. NEXUM [Concomitant]
     Dosage: 20 MG, UNK
  7. SENNA [Concomitant]
     Dosage: 8.6 MG, UNK
  8. AMBIEN [Concomitant]
     Dosage: 10 MG, UNK
  9. VENTOLIN HFA [Concomitant]
  10. POTASSIUM [Concomitant]
     Dosage: 95 MG, UNK
  11. ASPIRIN [Concomitant]
     Dosage: 325 MG, UNK
  12. MULTIVITAMIN [Concomitant]

REACTIONS (1)
  - Death [Fatal]
